FAERS Safety Report 14706393 (Version 1)
Quarter: 2018Q2

REPORT INFORMATION
  Report Type: Spontaneous
  Country: PL (occurrence: PL)
  Receive Date: 20180402
  Receipt Date: 20180402
  Transmission Date: 20180711
  Serious: Yes (Life-Threatening, Hospitalization)
  Sender: FDA-Public Use
  Company Number: PL-NOVOPROD-592451

PATIENT
  Age: 39 Year
  Sex: Female

DRUGS (3)
  1. INSULATARD HM [Suspect]
     Active Substance: INSULIN HUMAN
     Indication: SUICIDE ATTEMPT
     Dosage: UNK
     Route: 065
     Dates: start: 2015, end: 2015
  2. INSULATARD HM [Suspect]
     Active Substance: INSULIN HUMAN
     Dosage: 900 U, SINGLE
     Route: 058
     Dates: start: 20170120, end: 20170120
  3. AMARYL [Concomitant]
     Active Substance: GLIMEPIRIDE
     Indication: SUICIDE ATTEMPT
     Dosage: UNK
     Route: 065
     Dates: start: 201510

REACTIONS (3)
  - Hypoglycaemia [Recovered/Resolved]
  - Suicide attempt [Recovered/Resolved]
  - Suicide attempt [Unknown]

NARRATIVE: CASE EVENT DATE: 2015
